FAERS Safety Report 6365542-0 (Version None)
Quarter: 2009Q3

REPORT INFORMATION
  Report Type: 
  Country: None (occurrence: None)
  Receive Date: 20090919
  Receipt Date: 20090813
  Transmission Date: 20100115
  Serious: No
  Sender: FDA-Public Use
  Company Number: US-ABBOTT-09P-163-0591910-00

PATIENT

DRUGS (3)
  1. HUMIRA [Suspect]
     Indication: PSORIASIS
     Route: 058
     Dates: start: 20090601
  2. HUMIRA [Suspect]
     Route: 058
     Dates: start: 20090801
  3. HUMIRA [Suspect]

REACTIONS (1)
  - HERPES ZOSTER [None]
